FAERS Safety Report 19506011 (Version 1)
Quarter: 2021Q3

REPORT INFORMATION
  Report Type: Spontaneous
  Country: US (occurrence: US)
  Receive Date: 20210707
  Receipt Date: 20210707
  Transmission Date: 20211014
  Serious: Yes (Death)
  Sender: FDA-Public Use
  Company Number: None

PATIENT
  Age: 67 Year
  Sex: Female
  Weight: 44.91 kg

DRUGS (19)
  1. CLORTRIMAZOLE (TOPICAL) [Concomitant]
  2. FLOVENT HFA [Concomitant]
     Active Substance: FLUTICASONE PROPIONATE
  3. FLUPHENAZINE [Concomitant]
     Active Substance: FLUPHENAZINE
  4. MONTELUKAST [Concomitant]
     Active Substance: MONTELUKAST SODIUM
  5. AMLACTIN [Concomitant]
     Active Substance: AMMONIUM LACTATE
  6. BENZTROPINE. [Concomitant]
     Active Substance: BENZTROPINE
  7. LORATADINE. [Concomitant]
     Active Substance: LORATADINE
  8. KEYTRUDA [Suspect]
     Active Substance: PEMBROLIZUMAB
     Indication: LUNG NEOPLASM MALIGNANT
     Dosage: ?          OTHER FREQUENCY:Q3WKX6 CYCLE;OTHER ROUTE:IVSS?
     Dates: start: 20210422
  9. ACETAMINOPHEN. [Concomitant]
     Active Substance: ACETAMINOPHEN
  10. IPRATROPIUM (ORAL INHALATION) [Concomitant]
  11. METHOTREXATE. [Concomitant]
     Active Substance: METHOTREXATE
  12. MULTIVITAMIN [Concomitant]
     Active Substance: VITAMINS
  13. VITAMIN B12 [Concomitant]
     Active Substance: CYANOCOBALAMIN
  14. ALBUTEROL. [Concomitant]
     Active Substance: ALBUTEROL
  15. INCRUSE ELLIPTA [Concomitant]
     Active Substance: UMECLIDINIUM BROMIDE
  16. FLUTICASONE. [Concomitant]
     Active Substance: FLUTICASONE
  17. OMEPRAZOLE. [Concomitant]
     Active Substance: OMEPRAZOLE
  18. FAMOTIDINE. [Concomitant]
     Active Substance: FAMOTIDINE
  19. AMLODIPINE [Concomitant]
     Active Substance: AMLODIPINE BESYLATE

REACTIONS (1)
  - Death [None]
